FAERS Safety Report 9419777 (Version 2)
Quarter: 2013Q3

REPORT INFORMATION
  Report Type: Report from Study
  Country: US (occurrence: US)
  Receive Date: 20130725
  Receipt Date: 20130815
  Transmission Date: 20140515
  Serious: Yes (Hospitalization)
  Sender: FDA-Public Use
  Company Number: US-JNJFOC-20130522908

PATIENT
  Age: 23 Year
  Sex: Male
  Weight: 64.86 kg

DRUGS (9)
  1. REMICADE [Suspect]
     Indication: CROHN^S DISEASE
     Dosage: 5 MG/KG EVERY 0,2,6 THEN EVERY 8 WEEKS
     Route: 042
     Dates: start: 20130510, end: 20130510
  2. 6-MP [Concomitant]
     Indication: CROHN^S DISEASE
     Route: 065
     Dates: start: 20130426
  3. 6-MP [Concomitant]
     Indication: CROHN^S DISEASE
     Route: 065
     Dates: start: 20130517
  4. CIPRO [Concomitant]
     Indication: CROHN^S DISEASE
     Route: 065
     Dates: start: 20130426
  5. CIPRO [Concomitant]
     Indication: CROHN^S DISEASE
     Route: 065
     Dates: start: 20130517, end: 20130527
  6. FLAGYL [Concomitant]
     Indication: CROHN^S DISEASE
     Route: 065
     Dates: start: 20130426
  7. FLAGYL [Concomitant]
     Indication: CROHN^S DISEASE
     Route: 065
     Dates: start: 20130517, end: 20130527
  8. TYLENOL [Concomitant]
     Indication: PREMEDICATION
     Route: 048
     Dates: start: 20130510
  9. BENADRYL [Concomitant]
     Indication: PREMEDICATION
     Route: 048
     Dates: start: 20130510

REACTIONS (9)
  - Serum sickness [Recovered/Resolved]
  - Systemic inflammatory response syndrome [Recovered/Resolved]
  - Drug specific antibody present [Unknown]
  - Nausea [Recovered/Resolved]
  - Hypoaesthesia [Recovered/Resolved]
  - Hypersensitivity [Recovered/Resolved]
  - Dizziness [Recovered/Resolved]
  - Chills [Recovered/Resolved]
  - Paraesthesia [Recovered/Resolved]
